FAERS Safety Report 7108593-0 (Version None)
Quarter: 2010Q4

REPORT INFORMATION
  Report Type: 
  Country: None (occurrence: None)
  Receive Date: 20101112
  Receipt Date: 20101104
  Transmission Date: 20110411
  Serious: Yes (Other)
  Sender: FDA-Public Use
  Company Number: 2010SP058370

PATIENT
  Age: 37 Year
  Sex: Female
  Weight: 82 kg

DRUGS (1)
  1. CERAZETTE (DESOGESTREL /00754001/) [Suspect]
     Indication: CONTRACEPTION
     Dates: start: 20100801, end: 20101001

REACTIONS (2)
  - ANGINA PECTORIS [None]
  - CHEST DISCOMFORT [None]
